FAERS Safety Report 22176805 (Version 1)
Quarter: 2023Q2

REPORT INFORMATION
  Report Type: Spontaneous
  Country: US (occurrence: US)
  Receive Date: 20230405
  Receipt Date: 20230405
  Transmission Date: 20230722
  Serious: No
  Sender: FDA-Public Use
  Company Number: US-BAYER-2023A041436

PATIENT
  Age: 47 Year
  Sex: Female

DRUGS (2)
  1. MIRENA [Suspect]
     Active Substance: LEVONORGESTREL
     Indication: Contraception
     Dosage: 20?G/DAY
     Route: 015
     Dates: start: 20190319
  2. ORENITRAM [Concomitant]
     Active Substance: TREPROSTINIL
     Dosage: 3.125 MG, TID
     Route: 048

REACTIONS (2)
  - Respiration abnormal [None]
  - Dizziness [None]
